FAERS Safety Report 21956839 (Version 4)
Quarter: 2023Q1

REPORT INFORMATION
  Report Type: Spontaneous
  Country: CL (occurrence: CL)
  Receive Date: 20230206
  Receipt Date: 20230316
  Transmission Date: 20230418
  Serious: No
  Sender: FDA-Public Use
  Company Number: CL-PFIZER INC-PV202300018966

PATIENT
  Age: 12 Year
  Sex: Male

DRUGS (1)
  1. GENOTROPIN [Suspect]
     Active Substance: SOMATROPIN
     Dosage: UNK

REACTIONS (4)
  - Device issue [Unknown]
  - Device mechanical issue [Unknown]
  - Device delivery system issue [Unknown]
  - Drug dose omission by device [Unknown]
